FAERS Safety Report 24906338 (Version 9)
Quarter: 2025Q4

REPORT INFORMATION
  Report Type: Spontaneous
  Country: US (occurrence: US)
  Receive Date: 20250130
  Receipt Date: 20251211
  Transmission Date: 20260117
  Serious: Yes (Other)
  Sender: BRISTOL-MYERS SQUIBB COMPANY
  Company Number: US-BRISTOL-MYERS SQUIBB COMPANY-2025-013765

PATIENT
  Age: 71 Year
  Sex: Female

DRUGS (5)
  1. LENALIDOMIDE [Suspect]
     Active Substance: LENALIDOMIDE
     Indication: Myelodysplastic syndrome
     Route: 048
  2. LENALIDOMIDE [Suspect]
     Active Substance: LENALIDOMIDE
     Route: 048
  3. LENALIDOMIDE [Suspect]
     Active Substance: LENALIDOMIDE
     Route: 048
  4. LENALIDOMIDE [Suspect]
     Active Substance: LENALIDOMIDE
     Dosage: TAKE 1 CAPSULE BY MOUTH EVERY DAY
     Route: 048
  5. LENALIDOMIDE [Suspect]
     Active Substance: LENALIDOMIDE
     Route: 048

REACTIONS (10)
  - Diarrhoea [Not Recovered/Not Resolved]
  - Therapy interrupted [Unknown]
  - Product prescribing issue [Unknown]
  - Vomiting [Not Recovered/Not Resolved]
  - Depression [Unknown]
  - Fatigue [Not Recovered/Not Resolved]
  - Full blood count decreased [Unknown]
  - Product supply issue [Unknown]
  - Dehydration [Not Recovered/Not Resolved]
  - Dyspepsia [Unknown]
